FAERS Safety Report 11916674 (Version 1)
Quarter: 2016Q1

REPORT INFORMATION
  Report Type: Report from Study
  Country: US (occurrence: US)
  Receive Date: 20160114
  Receipt Date: 20160114
  Transmission Date: 20160526
  Serious: Yes (Other)
  Sender: FDA-Public Use
  Company Number: US-UCBSA-2015022525

PATIENT
  Age: 35 Year
  Sex: Female
  Weight: 72.6 kg

DRUGS (14)
  1. CERTOLIZUMAB PEGOL [Suspect]
     Active Substance: CERTOLIZUMAB PEGOL
     Indication: CROHN^S DISEASE
     Dosage: 200 MG, EV 2 WEEKS(QOW)
     Route: 058
     Dates: start: 201005
  2. ROBITUSSIN (GUAIFENESIN) [Concomitant]
     Active Substance: GUAIFENESIN
     Indication: COUGH
     Dosage: AS NEEDED
     Route: 048
     Dates: start: 20150330, end: 20150404
  3. LIDOCAINE. [Concomitant]
     Active Substance: LIDOCAINE
     Indication: ABSCESS
     Dosage: UNK
     Dates: start: 20150507, end: 20150507
  4. TYLENOL [Concomitant]
     Active Substance: ACETAMINOPHEN
     Indication: PAIN
     Dosage: AS NEEDED
     Route: 048
     Dates: start: 20150330
  5. TUMS [Concomitant]
     Active Substance: CALCIUM CARBONATE
     Indication: DYSPEPSIA
     Dosage: AS NEEDED
     Route: 048
     Dates: start: 201411
  6. TYLENOL [Concomitant]
     Active Substance: ACETAMINOPHEN
     Indication: PYREXIA
  7. FISH OIL W/VITAMIN D NOS [Concomitant]
     Indication: PREGNANCY
     Dosage: 1 DAILY
     Route: 048
     Dates: start: 201403
  8. FISH OIL W/VITAMIN D NOS [Concomitant]
     Indication: OSTEOPENIA
  9. DICLOXACILLIN [Concomitant]
     Active Substance: DICLOXACILLIN
     Indication: MASTITIS
     Dosage: UNK
     Dates: start: 20150503, end: 20150506
  10. BACTRIM DS [Concomitant]
     Active Substance: SULFAMETHOXAZOLE\TRIMETHOPRIM
     Indication: MASTITIS
     Dosage: UNK
     Dates: start: 20150506, end: 20150507
  11. PRENATAL VITAMINS [Concomitant]
     Active Substance: VITAMINS
     Indication: PREGNANCY
     Dosage: 1 DAILY
     Route: 048
     Dates: start: 201403
  12. CEPHALEXIN. [Concomitant]
     Active Substance: CEPHALEXIN
     Indication: MASTITIS
     Dosage: UNK
     Dates: start: 20150507
  13. ALBUTEROL. [Concomitant]
     Active Substance: ALBUTEROL
     Indication: WHEEZING
     Dosage: AS NEEDED
     Dates: start: 20150330, end: 20150412
  14. SUDAFED [Concomitant]
     Active Substance: PSEUDOEPHEDRINE HYDROCHLORIDE
     Indication: RESPIRATORY TRACT CONGESTION
     Dosage: 1 ONCE
     Route: 048
     Dates: start: 20150330, end: 20150330

REACTIONS (2)
  - Breast abscess [Recovered/Resolved]
  - Breast feeding [Unknown]

NARRATIVE: CASE EVENT DATE: 201504
